FAERS Safety Report 5901280-3 (Version None)
Quarter: 2008Q3

REPORT INFORMATION
  Report Type: 
  Country: None (occurrence: None)
  Receive Date: 20080929
  Receipt Date: 20080818
  Transmission Date: 20090109
  Serious: No
  Sender: FDA-Public Use
  Company Number: US-BRISTOL-MYERS SQUIBB COMPANY-14305502

PATIENT
  Age: 75 Year
  Sex: Male
  Weight: 88 kg

DRUGS (7)
  1. ORENCIA [Suspect]
     Indication: RHEUMATOID ARTHRITIS
     Dosage: SECOND INFUSION GIVEN ON 04-JUN-2008, THIRD INFUSION GIVEN ON 09-JUL-2008.
     Dates: start: 20080512
  2. PROCARDIA [Concomitant]
  3. KLONOPIN [Concomitant]
  4. METHOTREXATE [Concomitant]
  5. NEXIUM [Concomitant]
  6. HYTRIN [Concomitant]
  7. VICODIN [Concomitant]

REACTIONS (1)
  - PHOTOSENSITIVITY REACTION [None]
